FAERS Safety Report 14520176 (Version 2)
Quarter: 2018Q4

REPORT INFORMATION
  Report Type: Spontaneous
  Country: IN (occurrence: IN)
  Receive Date: 20180212
  Receipt Date: 20181207
  Transmission Date: 20190204
  Serious: Yes (Death, Other)
  Sender: FDA-Public Use
  Company Number: IN-PFIZER INC-2018056119

PATIENT
  Age: 54 Year
  Sex: Female
  Weight: 70.9 kg

DRUGS (17)
  1. ALLEGRA [Concomitant]
     Active Substance: FEXOFENADINE HYDROCHLORIDE
     Dosage: 180 MG, 1X/DAY (X 5 DAY)
  2. PAN [Concomitant]
     Dosage: 40 MG, 1X/DAY
  3. DIGENE [Concomitant]
     Dosage: 10 ML, 2X/DAY
  4. ATIVAN [Concomitant]
     Active Substance: LORAZEPAM
     Dosage: 1 MG, UNK (BED TIME)
  5. PROTINEX [Concomitant]
     Dosage: UNK 3 TSF, 3X/DAY
  6. DOXYCYCLINE. [Concomitant]
     Active Substance: DOXYCYCLINE
     Dosage: 100 MG, 2X/DAY (ONE DAY 1 FOLLOWED BY 100 MG ONCE DAILY FOR 14 DAYS)
  7. THYRONORM [Concomitant]
     Active Substance: LEVOTHYROXINE
     Dosage: UNK 75 MICG, 1X/DAY
  8. ZOLEDRONIC ACID. [Concomitant]
     Active Substance: ZOLEDRONIC ACID
     Dosage: 4 MG, UNK
  9. PERINORM [Concomitant]
     Dosage: 1 DF, UNK (BEFORE FOOD)
  10. TELMA [Concomitant]
     Active Substance: TELMISARTAN
     Dosage: 80 MG, UNK
  11. SHELCAL [Concomitant]
     Dosage: 500 MG, 2X/DAY
  12. LEVOLIN [Concomitant]
     Indication: WHEEZING
     Dosage: UNK UNK, AS NEEDED
  13. LEVOLIN [Concomitant]
     Indication: DYSPNOEA
  14. FULVESTRANT. [Concomitant]
     Active Substance: FULVESTRANT
     Dosage: 500 MG, UNK
     Route: 030
     Dates: start: 20180115
  15. PALBACE [Suspect]
     Active Substance: PALBOCICLIB
     Indication: BREAST CANCER METASTATIC
     Dosage: 100 MG, 1X/DAY (FOR 21 DAYS, GAP OF 7 DAYS)
     Route: 048
     Dates: start: 20171023
  16. METOSARTAN [Concomitant]
     Dosage: 500 MG, 1X/DAY
  17. DOMSTAL [Concomitant]
     Dosage: 10 MG, 3X/DAY

REACTIONS (10)
  - Asthenia [Unknown]
  - Odynophagia [Unknown]
  - Death [Fatal]
  - Cytopenia [Unknown]
  - Alanine aminotransferase increased [Unknown]
  - Blood potassium decreased [Unknown]
  - Blood urea increased [Unknown]
  - Aspartate aminotransferase increased [Unknown]
  - Blood alkaline phosphatase increased [Unknown]
  - Gamma-glutamyltransferase increased [Unknown]

NARRATIVE: CASE EVENT DATE: 20180419
